FAERS Safety Report 12169745 (Version 2)
Quarter: 2017Q3

REPORT INFORMATION
  Report Type: Report from Study
  Country: CA (occurrence: CA)
  Receive Date: 20160310
  Receipt Date: 20170728
  Transmission Date: 20171127
  Serious: Yes (Other)
  Sender: FDA-Public Use
  Company Number: PHHY2016CA031042

PATIENT
  Sex: Male

DRUGS (1)
  1. CICLOSPORIN SANDOZ [Suspect]
     Active Substance: CYCLOSPORINE
     Indication: CHRONIC SPONTANEOUS URTICARIA
     Dosage: 50 MG, BID
     Route: 048
     Dates: start: 201208

REACTIONS (2)
  - Amnesia [Unknown]
  - Urticaria [Unknown]
